FAERS Safety Report 16276194 (Version 2)
Quarter: 2019Q2

REPORT INFORMATION
  Report Type: Spontaneous
  Country: US (occurrence: US)
  Receive Date: 20190506
  Receipt Date: 20190530
  Transmission Date: 20190711
  Serious: No
  Sender: FDA-Public Use
  Company Number: US-SA-2019SA121696

PATIENT
  Age: 65 Year
  Sex: Male

DRUGS (10)
  1. HUMIRA [Concomitant]
     Active Substance: ADALIMUMAB
  2. LISINOPRIL. [Concomitant]
     Active Substance: LISINOPRIL
  3. SYMBICORT [Concomitant]
     Active Substance: BUDESONIDE\FORMOTEROL FUMARATE DIHYDRATE
  4. ZOLPIDEM [Concomitant]
     Active Substance: ZOLPIDEM\ZOLPIDEM TARTRATE
  5. KEVZARA [Suspect]
     Active Substance: SARILUMAB
     Dosage: 200 MG, QOW
     Route: 058
     Dates: start: 20190214
  6. DULOXETINE. [Concomitant]
     Active Substance: DULOXETINE
  7. METHOTREXATE. [Concomitant]
     Active Substance: METHOTREXATE
  8. ENBREL [Concomitant]
     Active Substance: ETANERCEPT
  9. MORPHINE SULF [Concomitant]
     Active Substance: MORPHINE SULFATE
  10. OXYCODONE [Concomitant]
     Active Substance: OXYCODONE

REACTIONS (6)
  - Pain [Not Recovered/Not Resolved]
  - Dry skin [Not Recovered/Not Resolved]
  - Drug ineffective [Not Recovered/Not Resolved]
  - Contusion [Not Recovered/Not Resolved]
  - Scab [Not Recovered/Not Resolved]
  - Pruritus [Not Recovered/Not Resolved]
